FAERS Safety Report 4733085-3 (Version None)
Quarter: 2005Q3

REPORT INFORMATION
  Report Type: 
  Country: None (occurrence: None)
  Receive Date: 20050801
  Receipt Date: 20050801
  Transmission Date: 20060218
  Serious: No
  Sender: FDA-Public Use
  Company Number: None

PATIENT
  Age: 69 Year
  Sex: Male
  Weight: 145 kg

DRUGS (7)
  1. SPIRONOLACTONE [Suspect]
     Indication: ARTHRALGIA
     Dosage: 12.5 Q DAILY
  2. SPIRONOLACTONE [Suspect]
     Indication: BLOOD PRESSURE
     Dosage: 12.5 Q DAILY
  3. SPIRONOLACTONE [Suspect]
     Indication: CARDIAC DISORDER
     Dosage: 12.5 Q DAILY
  4. NSAID [Suspect]
  5. ACE-INHIBITOR [Suspect]
  6. NAPROXEN [Concomitant]
  7. LISINOPRIL [Concomitant]

REACTIONS (4)
  - ARTHRALGIA [None]
  - BLOOD CREATININE INCREASED [None]
  - CARDIAC FAILURE [None]
  - HYPOTENSION [None]
